FAERS Safety Report 8960242 (Version 2)
Quarter: 2012Q4

REPORT INFORMATION
  Report Type: 
  Country: US (occurrence: US)
  Receive Date: 20121212
  Receipt Date: 20121219
  Transmission Date: 20130627
  Serious: Yes (Hospitalization)
  Sender: FDA-Public Use
  Company Number: US-BAYER-2012-129358

PATIENT
  Age: 43 Year
  Sex: Female

DRUGS (4)
  1. YASMIN [Suspect]
     Indication: MENORRHAGIA
     Dosage: 1 tablet, QD
     Route: 048
  2. YASMIN [Suspect]
     Indication: UTERINE FIBROID
  3. YASMIN [Suspect]
     Indication: BIRTH CONTROL
  4. OCELLA [Suspect]

REACTIONS (2)
  - Pulmonary embolism [None]
  - Deep vein thrombosis [None]
